FAERS Safety Report 8261053-6 (Version None)
Quarter: 2012Q2

REPORT INFORMATION
  Report Type: 
  Country: None (occurrence: None)
  Receive Date: 20120405
  Receipt Date: 20120321
  Transmission Date: 20120825
  Serious: Yes (Hospitalization, Other)
  Sender: FDA-Public Use
  Company Number: PHEH2012US003562

PATIENT
  Sex: Female

DRUGS (10)
  1. EXJADE [Suspect]
     Indication: IRON OVERLOAD
     Dosage: 2000 MG, DAILY
     Route: 048
     Dates: start: 20071207
  2. RESTORIL [Concomitant]
  3. PRILOSEC [Concomitant]
  4. LASIX [Concomitant]
  5. EXJADE [Suspect]
     Indication: SICKLE CELL ANAEMIA
  6. FOLIC ACID [Concomitant]
  7. PHENERGAN [Concomitant]
  8. SLOW-MAG [Concomitant]
  9. METHADONE HCL [Concomitant]
  10. ALBUTEROL [Concomitant]

REACTIONS (18)
  - PUPILLARY REFLEX IMPAIRED [None]
  - HEPATOMEGALY [None]
  - ASPARTATE AMINOTRANSFERASE INCREASED [None]
  - BLOOD UREA INCREASED [None]
  - DYSPEPSIA [None]
  - ASTHENIA [None]
  - ARTHRALGIA [None]
  - XERODERMA [None]
  - BRONCHITIS [None]
  - INSOMNIA [None]
  - ABDOMINAL TENDERNESS [None]
  - BLOOD BILIRUBIN INCREASED [None]
  - SICKLE CELL ANAEMIA WITH CRISIS [None]
  - CONGESTIVE CARDIOMYOPATHY [None]
  - AMBLYOPIA [None]
  - BLINDNESS [None]
  - BACK PAIN [None]
  - PAIN [None]
